FAERS Safety Report 8015382-1 (Version None)
Quarter: 2011Q4

REPORT INFORMATION
  Report Type: 
  Country: None (occurrence: None)
  Receive Date: 20111230
  Receipt Date: 20111228
  Transmission Date: 20120403
  Serious: Yes (Death, Other)
  Sender: FDA-Public Use
  Company Number: US-BAYER-2011-025499

PATIENT
  Age: 53 Year
  Sex: Male

DRUGS (3)
  1. NEXAVAR [Suspect]
     Indication: HEPATIC NEOPLASM MALIGNANT
     Dosage: 400 MG, BID
     Dates: start: 20110313
  2. NEXAVAR [Suspect]
     Dosage: 600 MG, QD 200 MG AM AND 400 MG PM
     Dates: end: 20111201
  3. NEXAVAR [Suspect]
     Dosage: 400 MG, BID
     Dates: start: 20110408

REACTIONS (5)
  - ABASIA [None]
  - BLISTER [None]
  - DEATH [None]
  - PALMAR-PLANTAR ERYTHRODYSAESTHESIA SYNDROME [None]
  - ERYTHEMA [None]
